FAERS Safety Report 5149132-3 (Version None)
Quarter: 2006Q4

REPORT INFORMATION
  Report Type: 
  Country: None (occurrence: None)
  Receive Date: 20061113
  Receipt Date: 20060807
  Transmission Date: 20070319
  Serious: No
  Sender: FDA-Public Use
  Company Number: US-GLAXOSMITHKLINE-A0615609A

PATIENT
  Age: 72 Year
  Sex: Female

DRUGS (6)
  1. COREG [Suspect]
     Indication: HYPERTENSION
     Dosage: 12.5MG TWICE PER DAY
     Route: 048
  2. NAPROXIN [Suspect]
     Route: 048
  3. CELEBREX [Suspect]
     Route: 048
  4. PROZAC [Concomitant]
     Route: 048
  5. CADUET [Concomitant]
     Route: 048
  6. HYDROCODONE [Concomitant]
     Route: 048

REACTIONS (3)
  - NAUSEA [None]
  - RETCHING [None]
  - VOMITING [None]
